FAERS Safety Report 10860929 (Version 1)
Quarter: 2015Q1

REPORT INFORMATION
  Report Type: Spontaneous
  Country: US (occurrence: US)
  Receive Date: 20150224
  Receipt Date: 20150224
  Transmission Date: 20150721
  Serious: Yes (Other)
  Sender: FDA-Public Use
  Company Number: US-ASTRAZENECA-2015SE15714

PATIENT
  Sex: Female

DRUGS (7)
  1. ADVAIR HFA [Suspect]
     Active Substance: FLUTICASONE PROPIONATE\SALMETEROL XINAFOATE
     Route: 065
  2. SYNTHROID [Suspect]
     Active Substance: LEVOTHYROXINE SODIUM
     Route: 065
  3. PREDNISONE. [Suspect]
     Active Substance: PREDNISONE
     Route: 065
  4. NEXIUM [Suspect]
     Active Substance: ESOMEPRAZOLE MAGNESIUM
     Route: 048
  5. LYRICA [Suspect]
     Active Substance: PREGABALIN
     Route: 065
  6. VITAMIN D [Suspect]
     Active Substance: CHOLECALCIFEROL
     Route: 065
  7. SKELAXIN [Suspect]
     Active Substance: METAXALONE
     Route: 065

REACTIONS (7)
  - Glucose tolerance impaired [Unknown]
  - Transient ischaemic attack [Unknown]
  - Seizure [Unknown]
  - Chronic obstructive pulmonary disease [Unknown]
  - Systemic lupus erythematosus [Unknown]
  - Hypothyroidism [Unknown]
  - Fibromyalgia [Unknown]
